FAERS Safety Report 17181108 (Version 1)
Quarter: 2019Q4

REPORT INFORMATION
  Report Type: Report from Study
  Country: None (occurrence: US)
  Receive Date: 20191220
  Receipt Date: 20191220
  Transmission Date: 20200122
  Serious: Yes (Other)
  Sender: FDA-Public Use
  Company Number: US-ABBVIE-19K-163-3134416-00

PATIENT
  Sex: Male

DRUGS (3)
  1. IMBRUVICA [Suspect]
     Active Substance: IBRUTINIB
     Dosage: 420 MG, QD
     Route: 048
     Dates: start: 20190708
  2. IMBRUVICA [Suspect]
     Active Substance: IBRUTINIB
     Indication: CHRONIC LYMPHOCYTIC LEUKAEMIA
     Dosage: 420 MG, QD
     Route: 048
     Dates: start: 20190201, end: 201907
  3. IMBRUVICA [Suspect]
     Active Substance: IBRUTINIB
     Route: 048
     Dates: start: 20190521

REACTIONS (13)
  - Haemorrhage [Unknown]
  - Basal cell carcinoma [Unknown]
  - Scab [Unknown]
  - Arthralgia [Unknown]
  - Nasal crusting [Unknown]
  - Pain in extremity [Unknown]
  - Dysphagia [Unknown]
  - Petechiae [Unknown]
  - Muscle spasms [Unknown]
  - Stomatitis [Unknown]
  - Hypertension [Not Recovered/Not Resolved]
  - Epistaxis [Unknown]
  - Musculoskeletal pain [Unknown]
